FAERS Safety Report 23617241 (Version 2)
Quarter: 2024Q2

REPORT INFORMATION
  Report Type: Spontaneous
  Country: BR (occurrence: BR)
  Receive Date: 20240311
  Receipt Date: 20240409
  Transmission Date: 20240716
  Serious: Yes (Other)
  Sender: FDA-Public Use
  Company Number: BR-ORGANON-O2403BRA000604

PATIENT
  Sex: Female

DRUGS (1)
  1. ETONOGESTREL [Suspect]
     Active Substance: ETONOGESTREL
     Dosage: 1 IMPLANT (LEFT ARM)
     Route: 059
     Dates: start: 20230619

REACTIONS (11)
  - Surgery [Recovered/Resolved]
  - Vaginal haemorrhage [Recovered/Resolved]
  - Chest pain [Recovered/Resolved]
  - Anxiety [Recovered/Resolved]
  - Limb injury [Recovered/Resolved]
  - Peripheral swelling [Recovered/Resolved]
  - Fibrosis [Recovered/Resolved]
  - Drug intolerance [Unknown]
  - Complication associated with device [Not Recovered/Not Resolved]
  - Complication of device removal [Not Recovered/Not Resolved]
  - Complication of device removal [Not Recovered/Not Resolved]

NARRATIVE: CASE EVENT DATE: 20230101
